FAERS Safety Report 8770416 (Version 1)
Quarter: 2012Q4

REPORT INFORMATION
  Report Type: 
  Country: US (occurrence: US)
  Receive Date: 20120906
  Receipt Date: 20120906
  Transmission Date: 20130627
  Serious: Yes (Other)
  Sender: FDA-Public Use
  Company Number: US-BAYER-2012-092209

PATIENT
  Weight: 3.22 kg

DRUGS (2)
  1. NATAZIA [Suspect]
     Dosage: UNK
     Route: 064
     Dates: start: 20110908, end: 201110
  2. VARICELLA-ZOSTER-IMMUNE GLOBULIN (HUMAN) [Suspect]
     Indication: PROPHYLAXIS
     Dosage: UNK
     Route: 064

REACTIONS (2)
  - Calcification of muscle [None]
  - Maternal drugs affecting foetus [None]
